FAERS Safety Report 8268816-1 (Version None)
Quarter: 2012Q2

REPORT INFORMATION
  Report Type: 
  Country: None (occurrence: None)
  Receive Date: 20120409
  Receipt Date: 20120409
  Transmission Date: 20120825
  Serious: Yes (Other)
  Sender: FDA-Public Use
  Company Number: None

PATIENT
  Sex: Female
  Weight: 91.172 kg

DRUGS (1)
  1. CIPROFLOXACIN HYDROCHLORIDE [Suspect]
     Indication: URINARY TRACT INFECTION
     Dosage: 500 MG
     Route: 048
     Dates: start: 20120330, end: 20120402

REACTIONS (8)
  - PAIN IN EXTREMITY [None]
  - MOVEMENT DISORDER [None]
  - PYREXIA [None]
  - EAR INFECTION [None]
  - MYALGIA [None]
  - MIGRAINE [None]
  - VISION BLURRED [None]
  - TENDON PAIN [None]
